FAERS Safety Report 5923243-4 (Version None)
Quarter: 2008Q4

REPORT INFORMATION
  Report Type: 
  Country: None (occurrence: None)
  Receive Date: 20081020
  Receipt Date: 20081015
  Transmission Date: 20090506
  Serious: Yes (Hospitalization)
  Sender: FDA-Public Use
  Company Number: JP-BRISTOL-MYERS SQUIBB COMPANY-14373443

PATIENT
  Age: 69 Year
  Sex: Male

DRUGS (2)
  1. TAXOL [Suspect]
     Indication: NON-SMALL CELL LUNG CANCER
     Dosage: RECEIVED 2 COURSES
     Route: 041
     Dates: start: 19990916, end: 19990916
  2. PARAPLATIN [Suspect]
     Indication: NON-SMALL CELL LUNG CANCER
     Dosage: PATIENT RECEIVED 2 COURSES
     Route: 041
     Dates: start: 19990916, end: 19990916

REACTIONS (1)
  - ACUTE MYELOID LEUKAEMIA [None]
